FAERS Safety Report 7584149-0 (Version None)
Quarter: 2011Q2

REPORT INFORMATION
  Report Type: 
  Country: None (occurrence: None)
  Receive Date: 20110630
  Receipt Date: 20110627
  Transmission Date: 20111010
  Serious: Yes (Hospitalization)
  Sender: FDA-Public Use
  Company Number: FR-PFIZER INC-2011141863

PATIENT
  Age: 69 Year
  Sex: Male
  Weight: 70 kg

DRUGS (4)
  1. CLINDAMYCIN HCL [Suspect]
     Dosage: DAILY DOSE
     Route: 042
     Dates: start: 20110513, end: 20110515
  2. ANDROTARDYL [Concomitant]
     Dosage: 250 MG, EVERY 3 WEEKS
     Dates: start: 20100701
  3. ACETAMINOPHEN [Suspect]
     Dosage: 1 G, 4X/DAY
     Route: 042
     Dates: start: 20110513, end: 20110514
  4. KETOPROFEN [Suspect]
     Dosage: 50 MG, 1X/DAY
     Route: 042
     Dates: start: 20110513, end: 20110514

REACTIONS (1)
  - HEPATOCELLULAR INJURY [None]
